FAERS Safety Report 25970228 (Version 3)
Quarter: 2025Q4

REPORT INFORMATION
  Report Type: Spontaneous
  Country: UZ (occurrence: UZ)
  Receive Date: 20251028
  Receipt Date: 20251029
  Transmission Date: 20260118
  Serious: Yes (Other)
  Sender: NOVARTIS
  Company Number: UZ-002147023-NVSC2025UZ158363

PATIENT

DRUGS (6)
  1. CYCLOSPORINE [Suspect]
     Active Substance: CYCLOSPORINE
     Indication: Prophylaxis against graft versus host disease
     Dosage: 3 MG/KG, BID (3 MG/KG/DAY, TWICE DAILY (PRIOR TO DETERMINING BLOOD CONCENTRATIONS) (AVERAGE 250 MG/D
     Route: 048
  2. CYCLOSPORINE [Suspect]
     Active Substance: CYCLOSPORINE
     Indication: Allogenic stem cell transplantation
  3. MYCOPHENOLATE MOFETIL [Concomitant]
     Active Substance: MYCOPHENOLATE MOFETIL
     Indication: Prophylaxis against graft versus host disease
     Dosage: 30 MG/KG (FOR RELATED-MATCHED TRANSPLANTATION, FROM DAY +5 TO DAY +35)
     Route: 065
  4. MYCOPHENOLATE MOFETIL [Concomitant]
     Active Substance: MYCOPHENOLATE MOFETIL
     Dosage: 30 MG/KG (FOR HAPLOIDENTICAL HSCT, FROM DAY -15 TO DAY +90, 30 MG/KG FROM DAY -15 TO DAY +5, AND 45
     Route: 065
  5. MYCOPHENOLATE MOFETIL [Concomitant]
     Active Substance: MYCOPHENOLATE MOFETIL
     Dosage: 45 MG/KG (FOR HAPLOIDENTICAL HSCT, FROM DAY -15 TO DAY +90, 30 MG/KG FROM DAY -15 TO DAY +5, AND 45
     Route: 065
  6. CYCLOPHOSPHAMIDE [Concomitant]
     Active Substance: CYCLOPHOSPHAMIDE
     Indication: Prophylaxis against graft versus host disease
     Dosage: 25 MG/KG
     Route: 065

REACTIONS (1)
  - Chronic graft versus host disease in skin [Recovering/Resolving]
